FAERS Safety Report 14456775 (Version 1)
Quarter: 2018Q1

REPORT INFORMATION
  Report Type: Spontaneous
  Country: US (occurrence: US)
  Receive Date: 20180129
  Receipt Date: 20180129
  Transmission Date: 20180509
  Serious: No
  Sender: FDA-Public Use
  Company Number: None

PATIENT
  Age: 93 Year
  Sex: Male
  Weight: 61.23 kg

DRUGS (5)
  1. POTASSIUM [Concomitant]
     Active Substance: POTASSIUM
  2. CALCIUM + D3 [Concomitant]
     Active Substance: CALCIUM\CHOLECALCIFEROL
  3. VALSARTAN. [Concomitant]
     Active Substance: VALSARTAN
  4. CENTRUM SILVER -50+ MULTIVITAMIN [Concomitant]
  5. VESICARE [Suspect]
     Active Substance: SOLIFENACIN SUCCINATE
     Indication: HYPERTONIC BLADDER
     Dosage: 10 MG 30 1 X DAY ORAL MOUTH
     Route: 048
     Dates: start: 20160604, end: 201710

REACTIONS (4)
  - Abdominal distension [None]
  - Drug ineffective [None]
  - Constipation [None]
  - Gastrointestinal obstruction [None]

NARRATIVE: CASE EVENT DATE: 20170910
